FAERS Safety Report 18084102 (Version 2)
Quarter: 2020Q3

REPORT INFORMATION
  Report Type: Spontaneous
  Country: US (occurrence: US)
  Receive Date: 20200729
  Receipt Date: 20200818
  Transmission Date: 20201103
  Serious: Yes (Other)
  Sender: FDA-Public Use
  Company Number: US-ASTRAZENECA-2020SE93492

PATIENT
  Age: 27 Year
  Sex: Female

DRUGS (3)
  1. ARA?C [Suspect]
     Active Substance: CYTARABINE
     Dosage: UNKNOWN
     Route: 065
  2. LYNPARZA [Suspect]
     Active Substance: OLAPARIB
     Dosage: UNKNOWN
     Route: 048
  3. METHOTREXATE. [Suspect]
     Active Substance: METHOTREXATE
     Dosage: UNKNOWN
     Route: 037

REACTIONS (3)
  - Metastases to meninges [Unknown]
  - Disease progression [Unknown]
  - Nervous system disorder [Unknown]
